FAERS Safety Report 15570280 (Version 3)
Quarter: 2018Q4

REPORT INFORMATION
  Report Type: Report from Study
  Country: CN (occurrence: CN)
  Receive Date: 20181031
  Receipt Date: 20181121
  Transmission Date: 20190205
  Serious: Yes (Other)
  Sender: FDA-Public Use
  Company Number: CN-JNJFOC-20180915593

PATIENT
  Age: 25 Year
  Sex: Male
  Weight: 56 kg

DRUGS (6)
  1. PYRAZINAMIDE. [Suspect]
     Active Substance: PYRAZINAMIDE
     Indication: TUBERCULOSIS
     Route: 065
  2. MOXIFLOXACIN. [Suspect]
     Active Substance: MOXIFLOXACIN
     Indication: TUBERCULOSIS
     Route: 065
  3. SIRTURO [Suspect]
     Active Substance: BEDAQUILINE FUMARATE
     Indication: TUBERCULOSIS
     Route: 048
     Dates: start: 20180719, end: 2018
  4. SIRTURO [Suspect]
     Active Substance: BEDAQUILINE FUMARATE
     Indication: TUBERCULOSIS
     Route: 048
     Dates: start: 2018
  5. CLOFAZIMINE [Suspect]
     Active Substance: CLOFAZIMINE
     Indication: TUBERCULOSIS
     Route: 065
  6. PROTIONAMIDE [Suspect]
     Active Substance: PROTIONAMIDE
     Indication: TUBERCULOSIS
     Route: 065

REACTIONS (2)
  - Hepatotoxicity [Not Recovered/Not Resolved]
  - Electrocardiogram QT prolonged [Recovered/Resolved]

NARRATIVE: CASE EVENT DATE: 20180913
